FAERS Safety Report 14545491 (Version 5)
Quarter: 2018Q2

REPORT INFORMATION
  Report Type: Spontaneous
  Country: US (occurrence: US)
  Receive Date: 20180219
  Receipt Date: 20180514
  Transmission Date: 20180711
  Serious: Yes (Death, Hospitalization, Other)
  Sender: FDA-Public Use
  Company Number: US-TAKEDA-2018MPI001391

PATIENT
  Sex: Male
  Weight: 58 kg

DRUGS (4)
  1. NINLARO [Suspect]
     Active Substance: IXAZOMIB CITRATE
     Dosage: 4 MG, UNK
     Route: 048
     Dates: start: 20180209, end: 201804
  2. CYCLOPHOSPHAMIDE. [Suspect]
     Active Substance: CYCLOPHOSPHAMIDE
     Indication: PLASMA CELL MYELOMA
     Dosage: UNK
     Route: 065
  3. NINLARO [Suspect]
     Active Substance: IXAZOMIB CITRATE
     Indication: PLASMA CELL MYELOMA
     Dosage: 4 MG, UNK
     Route: 048
     Dates: start: 20171011
  4. POMALYST [Suspect]
     Active Substance: POMALIDOMIDE
     Indication: PLASMA CELL MYELOMA
     Dosage: UNK
     Route: 065

REACTIONS (13)
  - Malaise [Unknown]
  - Laboratory test abnormal [Recovering/Resolving]
  - Diarrhoea [Unknown]
  - Sepsis [Fatal]
  - Back pain [Unknown]
  - Body height decreased [Unknown]
  - Dialysis [Recovering/Resolving]
  - Dysgeusia [Unknown]
  - Off label use [Unknown]
  - Neuropathy peripheral [Unknown]
  - Nausea [Unknown]
  - Weight increased [Unknown]
  - Light chain analysis increased [Unknown]
